FAERS Safety Report 14557057 (Version 1)
Quarter: 2018Q1

REPORT INFORMATION
  Report Type: Spontaneous
  Country: US (occurrence: US)
  Receive Date: 20180221
  Receipt Date: 20180221
  Transmission Date: 20180509
  Serious: No
  Sender: FDA-Public Use
  Company Number: US-ENDO PHARMACEUTICALS INC-2018-014283

PATIENT
  Age: 45 Year
  Sex: Female
  Weight: 109 kg

DRUGS (2)
  1. NASCOBAL [Suspect]
     Active Substance: CYANOCOBALAMIN
     Indication: SUPPLEMENTATION THERAPY
     Dosage: UNK UNK,SPRAYED INTO NOSTRIL ONCE A WEEK
     Route: 045
     Dates: start: 201712
  2. BARIACTIVE CALCIUM, VITAMIN D3,MAGNESIUM [Suspect]
     Active Substance: CALCIUM\ERGOCALCIFEROL\MAGNESIUM
     Indication: SUPPLEMENTATION THERAPY
     Dosage: UNK UNK, UNKNOWN
     Route: 065
     Dates: start: 201712

REACTIONS (2)
  - Hyperkeratosis [Not Recovered/Not Resolved]
  - Pruritus generalised [Not Recovered/Not Resolved]

NARRATIVE: CASE EVENT DATE: 201801
